FAERS Safety Report 8341420-2 (Version None)
Quarter: 2012Q2

REPORT INFORMATION
  Report Type: 
  Country: None (occurrence: None)
  Receive Date: 20120507
  Receipt Date: 20120427
  Transmission Date: 20120825
  Serious: Yes (Hospitalization, Disabling)
  Sender: FDA-Public Use
  Company Number: US-MERCK-1201USA00812

PATIENT
  Age: 66 Year
  Sex: Female

DRUGS (7)
  1. FOSAMAX [Suspect]
     Indication: OSTEOPOROSIS
     Route: 048
     Dates: start: 20080201
  2. CALCIUM (UNSPECIFIED) [Concomitant]
     Route: 048
     Dates: start: 19880101
  3. OMEPRAZOLE [Concomitant]
     Route: 065
  4. BONIVA [Suspect]
     Route: 065
  5. VITAMIN D (UNSPECIFIED) [Concomitant]
     Route: 048
     Dates: start: 20010101
  6. MELATONIN [Concomitant]
     Route: 048
     Dates: start: 20010101
  7. SOMINEX (DIPHENHYDRAMINE HYDROCHLORIDE) [Concomitant]
     Indication: HYPERSENSITIVITY
     Route: 065

REACTIONS (4)
  - SPINAL COMPRESSION FRACTURE [None]
  - FEMUR FRACTURE [None]
  - PNEUMONIA [None]
  - INTESTINAL OBSTRUCTION [None]
